FAERS Safety Report 7227863-9 (Version None)
Quarter: 2011Q1

REPORT INFORMATION
  Report Type: 
  Country: None (occurrence: None)
  Receive Date: 20110114
  Receipt Date: 20110105
  Transmission Date: 20110831
  Serious: Yes (Death, Hospitalization, Disabling, Other)
  Sender: FDA-Public Use
  Company Number: US-MERCK-0807USA00769

PATIENT
  Age: 63 Year
  Sex: Female

DRUGS (7)
  1. METHOTREXATE [Concomitant]
     Indication: INTERSTITIAL LUNG DISEASE
     Route: 065
  2. [THERAPY UNSPECIFIED] [Concomitant]
     Indication: HYPERTENSION
     Route: 065
     Dates: start: 20000101, end: 20060101
  3. PREDNISONE [Suspect]
     Route: 065
     Dates: start: 20030101, end: 20060101
  4. FOSAMAX [Suspect]
     Indication: OSTEOPENIA
     Route: 048
     Dates: start: 20000901, end: 20050101
  5. [THERAPY UNSPECIFIED] [Concomitant]
     Indication: BLOOD CHOLESTEROL INCREASED
     Route: 065
     Dates: start: 20000101, end: 20060101
  6. METHOTREXATE [Concomitant]
     Indication: SCLERODERMA
     Route: 065
  7. PREMPRO [Concomitant]
     Indication: HORMONE REPLACEMENT THERAPY
     Route: 065
     Dates: end: 20020701

REACTIONS (20)
  - RIB FRACTURE [None]
  - LOOSE TOOTH [None]
  - COUGH [None]
  - OSTEOMYELITIS [None]
  - NOCTURIA [None]
  - DEPRESSION [None]
  - FISTULA [None]
  - OSTEONECROSIS OF JAW [None]
  - JAW DISORDER [None]
  - SPINAL FRACTURE [None]
  - SOFT TISSUE INFECTION [None]
  - OSTEOPOROSIS [None]
  - INCREASED TENDENCY TO BRUISE [None]
  - INTERSTITIAL LUNG DISEASE [None]
  - SCLERODERMA [None]
  - ANXIETY [None]
  - APHTHOUS STOMATITIS [None]
  - BONE DISORDER [None]
  - PNEUMONIA [None]
  - FIBROCYSTIC BREAST DISEASE [None]
